FAERS Safety Report 25875360 (Version 2)
Quarter: 2025Q4

REPORT INFORMATION
  Report Type: Report from Study
  Country: CA (occurrence: CA)
  Receive Date: 20251003
  Receipt Date: 20251030
  Transmission Date: 20260118
  Serious: Yes (Other)
  Sender: CELLTRION
  Company Number: CA-CELLTRION INC.-2025CA035083

PATIENT

DRUGS (2)
  1. RITUXIMAB [Suspect]
     Active Substance: RITUXIMAB
     Indication: Relapsing-remitting multiple sclerosis
     Dosage: 1000 MG
     Route: 042
  2. METHYLPREDNISOLONE [Concomitant]
     Active Substance: METHYLPREDNISOLONE
     Indication: Product used for unknown indication
     Dosage: 100 MG
     Route: 042

REACTIONS (6)
  - Dyspnoea [Recovered/Resolved]
  - Hypersensitivity [Recovered/Resolved]
  - Blood pressure decreased [Recovered/Resolved]
  - Throat irritation [Recovered/Resolved]
  - Off label use [Recovered/Resolved]
  - Intentional product use issue [Unknown]
